FAERS Safety Report 7034825-3 (Version None)
Quarter: 2010Q4

REPORT INFORMATION
  Report Type: 
  Country: None (occurrence: None)
  Receive Date: 20101008
  Receipt Date: 20100927
  Transmission Date: 20110411
  Serious: Yes (Other)
  Sender: FDA-Public Use
  Company Number: JP-ROCHE-693166

PATIENT
  Sex: Male
  Weight: 57 kg

DRUGS (9)
  1. NAIXAN [Suspect]
     Indication: TUMOUR ASSOCIATED FEVER
     Route: 048
     Dates: start: 20100126, end: 20100223
  2. AVASTIN [Suspect]
     Indication: LUNG ADENOCARCINOMA METASTATIC
     Route: 041
     Dates: start: 20100202, end: 20100223
  3. TAXOL [Suspect]
     Indication: LUNG ADENOCARCINOMA METASTATIC
     Route: 041
     Dates: start: 20100202, end: 20100223
  4. CARBOPLATIN [Concomitant]
     Route: 041
     Dates: start: 20100202, end: 20100223
  5. ASPIRIN [Concomitant]
     Dosage: DOSAGE FORM: ENTERIC COATED DRUG
     Route: 048
     Dates: start: 20100122
  6. TAKEPRON [Concomitant]
     Route: 048
     Dates: start: 20100126, end: 20100311
  7. GOSHAJINKIGAN [Concomitant]
     Dosage: DOSAGE FORM: GRANULATED POWDER
     Route: 048
     Dates: start: 20100202, end: 20100316
  8. METHYCOBAL [Concomitant]
     Route: 048
     Dates: start: 20100202, end: 20100316
  9. OLMETEC [Concomitant]
     Route: 048
     Dates: start: 20100202

REACTIONS (2)
  - DEEP VEIN THROMBOSIS [None]
  - HYPOAESTHESIA [None]
